FAERS Safety Report 7151230-X (Version None)
Quarter: 2010Q4

REPORT INFORMATION
  Report Type: 
  Country: None (occurrence: None)
  Receive Date: 20101210
  Receipt Date: 20101129
  Transmission Date: 20110411
  Serious: Yes (Other)
  Sender: FDA-Public Use
  Company Number: US-ELI_LILLY_AND_COMPANY-US201008006258

PATIENT
  Sex: Female

DRUGS (13)
  1. FORTEO [Suspect]
     Indication: OSTEOPOROSIS
     Dosage: 20 UG, DAILY (1/D)
     Dates: start: 20100803
  2. FORTEO [Suspect]
     Dosage: 20 UG, DAILY (1/D)
  3. SERAX [Concomitant]
     Indication: PANIC ATTACK
  4. CLARITIN [Concomitant]
     Indication: HYPERSENSITIVITY
  5. ASCORBIC ACID [Concomitant]
     Dosage: UNK, DAILY (1/D)
  6. DYAZIDE [Concomitant]
     Indication: FLUID RETENTION
  7. ESTER-C [Concomitant]
  8. GLUCOSAMINE CHONDROITIN [Concomitant]
     Dosage: UNK, DAILY (1/D)
  9. LOVAZA [Concomitant]
  10. COQ-10 [Concomitant]
     Dosage: 100 MG, UNK
  11. ULTRACET [Concomitant]
     Indication: PAIN
     Dosage: UNK, EACH EVENING
  12. MILK OF MAGNESIA [Concomitant]
     Indication: INTESTINAL FUNCTIONAL DISORDER
     Dosage: UNK, EACH EVENING
  13. STOOL SOFTENER [Concomitant]
     Indication: INTESTINAL FUNCTIONAL DISORDER
     Dosage: UNK, EACH EVENING

REACTIONS (9)
  - ASTHENIA [None]
  - CARDIOVASCULAR DISORDER [None]
  - CATARACT [None]
  - DIZZINESS [None]
  - EYE HAEMORRHAGE [None]
  - INJECTION SITE PAIN [None]
  - MACULAR DEGENERATION [None]
  - NAUSEA [None]
  - VISUAL ACUITY REDUCED [None]
